FAERS Safety Report 11710248 (Version 2)
Quarter: 2015Q4

REPORT INFORMATION
  Report Type: Spontaneous
  Country: US (occurrence: US)
  Receive Date: 20151104
  Receipt Date: 20151110
  Transmission Date: 20160304
  Serious: Yes (Other)
  Sender: FDA-Public Use
  Company Number: US-ELI_LILLY_AND_COMPANY-US201108002736

PATIENT
  Sex: Female

DRUGS (1)
  1. FORTEO [Suspect]
     Active Substance: TERIPARATIDE
     Indication: OSTEOPOROSIS POSTMENOPAUSAL
     Dosage: UNK

REACTIONS (7)
  - Headache [Unknown]
  - Adverse event [Unknown]
  - Intentional product misuse [Unknown]
  - Arthralgia [Unknown]
  - Drug dose omission [Recovered/Resolved]
  - Syncope [Unknown]
  - Pain in extremity [Unknown]
